FAERS Safety Report 4822230-7 (Version None)
Quarter: 2005Q4

REPORT INFORMATION
  Report Type: 
  Country: None (occurrence: None)
  Receive Date: 20051107
  Receipt Date: 20051102
  Transmission Date: 20060501
  Serious: Yes (Hospitalization)
  Sender: FDA-Public Use
  Company Number: GB-MERCK-0511GBR00024

PATIENT
  Age: 50 Year
  Sex: Male

DRUGS (8)
  1. VIOXX [Suspect]
     Route: 048
  2. ADALIMUMAB [Suspect]
     Indication: RHEUMATOID ARTHRITIS
     Route: 058
     Dates: start: 20050401, end: 20050803
  3. SULFASALAZINE [Suspect]
     Route: 065
  4. ATENOLOL [Suspect]
     Route: 065
  5. LANSOPRAZOLE [Suspect]
     Route: 065
  6. PROCHLORPERAZINE [Suspect]
     Route: 065
  7. WARFARIN [Suspect]
     Route: 065
  8. FERROUS SULFATE TAB [Suspect]
     Route: 065

REACTIONS (2)
  - ARTHRITIS INFECTIVE [None]
  - DRUG INEFFECTIVE [None]
